FAERS Safety Report 8923235 (Version 1)
Quarter: 2012Q4

REPORT INFORMATION
  Report Type: Spontaneous
  Country: QA (occurrence: None)
  Receive Date: 20121115
  Receipt Date: 20121115
  Transmission Date: 20130627
  Serious: Yes (Hospitalization)
  Sender: FDA-Public Use
  Company Number: QA-DEXPHARM-20121493

PATIENT
  Age: 60 Year
  Sex: Female

DRUGS (8)
  1. ATORVASTATIN [Suspect]
     Indication: HYPERLIPIDEMIA
  2. OMEPRAZOLE [Suspect]
     Indication: GASTRIC ULCER PROPHYLAXIS
  3. DEXAMETHASONE [Suspect]
     Indication: SPINAL CORD COMPRESSION
  4. BISACODYL [Concomitant]
  5. CALCIUM CARBONATE [Concomitant]
  6. CELECOXIB [Concomitant]
  7. GABAPENTIN [Concomitant]
  8. TRAMADOL [Concomitant]

REACTIONS (5)
  - Drug interaction [None]
  - Rhabdomyolysis [None]
  - Urosepsis [None]
  - Escherichia infection [None]
  - Hepatic function abnormal [None]
